FAERS Safety Report 18917552 (Version 1)
Quarter: 2021Q1

REPORT INFORMATION
  Report Type: Spontaneous
  Country: US (occurrence: US)
  Receive Date: 20210219
  Receipt Date: 20210219
  Transmission Date: 20210420
  Serious: No
  Sender: FDA-Public Use
  Company Number: US-PERRIGO-20US014394

PATIENT
  Age: 87 Year
  Sex: Male
  Weight: 76.19 kg

DRUGS (9)
  1. VALSARTAN ^NICHI IKO^ [Concomitant]
     Active Substance: VALSARTAN
     Indication: CARDIAC FAILURE CONGESTIVE
     Dosage: UNKNOWN, UNKNOWN
     Route: 065
  2. COREG [Concomitant]
     Active Substance: CARVEDILOL
     Indication: PROPHYLAXIS
     Dosage: UNKNOWN, UNKNOWN
     Route: 048
  3. TERAZOSIN [Concomitant]
     Active Substance: TERAZOSIN HYDROCHLORIDE
     Indication: DYSURIA
     Dosage: UNKNOWN, UNKNOWN
     Route: 048
  4. LOPERAMIDE HYDROCHLORIDE. [Suspect]
     Active Substance: LOPERAMIDE HYDROCHLORIDE
     Indication: DIARRHOEA
     Dosage: 4 MG AFTER 1ST LOOSE STOOL, 2 MG AFTER EACH SUBSEQUENT LOOSE STOOL, QD
     Route: 048
     Dates: start: 20200922, end: 20201006
  5. LIPITOR [Concomitant]
     Active Substance: ATORVASTATIN CALCIUM
     Indication: BLOOD CHOLESTEROL INCREASED
     Dosage: UNKNOWN, UNKNOWN
     Route: 048
  6. JANUVIA [Concomitant]
     Active Substance: SITAGLIPTIN PHOSPHATE
     Indication: TYPE 2 DIABETES MELLITUS
     Dosage: UNKNOWN, UNKNOWN
     Route: 065
  7. ELIQUIS [Concomitant]
     Active Substance: APIXABAN
     Indication: HYPERTENSION
     Dosage: UNKNOWN, UNKNOWN
     Route: 048
  8. VITAMIN D                          /00107901/ [Concomitant]
     Active Substance: ERGOCALCIFEROL
     Indication: SUPPLEMENTATION THERAPY
     Dosage: UNKNOWN, UNKNOWN
     Route: 048
  9. GLIPIZIDE BP [Concomitant]
     Indication: TYPE 2 DIABETES MELLITUS
     Dosage: UNKNOWN, UNKNOWN
     Route: 048

REACTIONS (3)
  - Incorrect product administration duration [Recovered/Resolved]
  - Expired product administered [Recovered/Resolved]
  - Therapeutic product effect delayed [Unknown]

NARRATIVE: CASE EVENT DATE: 20200922
